FAERS Safety Report 4279881-0 (Version None)
Quarter: 2004Q1

REPORT INFORMATION
  Report Type: 
  Country: None (occurrence: None)
  Receive Date: 20040126
  Receipt Date: 20040109
  Transmission Date: 20041129
  Serious: Yes (Hospitalization, Other)
  Sender: FDA-Public Use
  Company Number: 8004827

PATIENT
  Age: 57 Year
  Sex: Female
  Weight: 45 kg

DRUGS (2)
  1. KEPPRA [Suspect]
     Indication: CONVULSION
     Dosage: 500 MG 2/D PO
     Route: 048
     Dates: start: 20030820, end: 20030826
  2. VALPROIC ACID` [Concomitant]

REACTIONS (8)
  - ANAEMIA [None]
  - CONVULSION [None]
  - DRUG LEVEL INCREASED [None]
  - DUODENAL POLYP [None]
  - DUODENITIS [None]
  - GASTRITIS EROSIVE [None]
  - LEUKOPENIA [None]
  - THROMBOCYTOPENIA [None]
